FAERS Safety Report 20106003 (Version 2)
Quarter: 2022Q3

REPORT INFORMATION
  Report Type: Spontaneous
  Country: DE (occurrence: DE)
  Receive Date: 20211124
  Receipt Date: 20220713
  Transmission Date: 20221026
  Serious: Yes (Hospitalization)
  Sender: FDA-Public Use
  Company Number: DE-GSKCCFEMEA-Case-01358088_AE-52010

PATIENT

DRUGS (1)
  1. BENLYSTA [Suspect]
     Active Substance: BELIMUMAB
     Indication: Product used for unknown indication
     Dosage: UNK, WE
     Route: 058

REACTIONS (1)
  - Surgery [Unknown]
